FAERS Safety Report 6739262-4 (Version None)
Quarter: 2010Q2

REPORT INFORMATION
  Report Type: 
  Country: None (occurrence: None)
  Receive Date: 20100525
  Receipt Date: 20100517
  Transmission Date: 20101027
  Serious: Yes (Life-Threatening)
  Sender: FDA-Public Use
  Company Number: US-ASTRAZENECA-2010SE11191

PATIENT
  Age: 8 Year
  Sex: Female
  Weight: 41.7 kg

DRUGS (11)
  1. SEROQUEL [Suspect]
     Indication: ATTENTION DEFICIT/HYPERACTIVITY DISORDER
     Route: 048
     Dates: start: 20100101
  2. SEROQUEL [Suspect]
     Indication: OPPOSITIONAL DEFIANT DISORDER
     Route: 048
     Dates: start: 20100101
  3. SEROQUEL [Suspect]
     Indication: AFFECTIVE DISORDER
     Route: 048
     Dates: start: 20100101
  4. SEROQUEL [Suspect]
     Route: 048
     Dates: start: 20100312
  5. SEROQUEL [Suspect]
     Route: 048
     Dates: start: 20100312
  6. SEROQUEL [Suspect]
     Route: 048
     Dates: start: 20100312
  7. SEROQUEL [Suspect]
     Route: 048
  8. SEROQUEL [Suspect]
     Route: 048
  9. SEROQUEL [Suspect]
     Route: 048
  10. CLONIDINE [Concomitant]
     Indication: HYPERTENSION
     Route: 048
  11. STRATTERA [Concomitant]
     Route: 048

REACTIONS (10)
  - ALTERED STATE OF CONSCIOUSNESS [None]
  - BODY TEMPERATURE DECREASED [None]
  - CRYING [None]
  - DRUG INEFFECTIVE [None]
  - FLUSHING [None]
  - HYPOTHERMIA [None]
  - MOOD SWINGS [None]
  - MUSCLE RIGIDITY [None]
  - PALLOR [None]
  - STUPOR [None]
